FAERS Safety Report 19718383 (Version 3)
Quarter: 2021Q3

REPORT INFORMATION
  Report Type: Report from Study
  Country: US (occurrence: US)
  Receive Date: 20210818
  Receipt Date: 20210924
  Transmission Date: 20211014
  Serious: Yes (Hospitalization, Other)
  Sender: FDA-Public Use
  Company Number: US-B.I. PHARMACEUTICALS,INC./RIDGEFIELD-2020-MR-039360

PATIENT
  Age: 76 Year
  Sex: Male

DRUGS (5)
  1. XARELTO [Concomitant]
     Active Substance: RIVAROXABAN
     Indication: PRODUCT USED FOR UNKNOWN INDICATION
  2. OFEV [Suspect]
     Active Substance: NINTEDANIB
     Dosage: OFEV 100MG ORALLY TWICE DAILY
     Route: 048
  3. MORPHINE [Suspect]
     Active Substance: MORPHINE
     Indication: PRODUCT USED FOR UNKNOWN INDICATION
     Route: 065
  4. OFEV [Suspect]
     Active Substance: NINTEDANIB
     Indication: IDIOPATHIC PULMONARY FIBROSIS
     Route: 048
     Dates: start: 20200714
  5. LORAZEPAM. [Suspect]
     Active Substance: LORAZEPAM
     Indication: PRODUCT USED FOR UNKNOWN INDICATION
     Route: 065

REACTIONS (18)
  - Localised infection [Unknown]
  - Oxygen saturation decreased [Unknown]
  - Decreased appetite [Unknown]
  - Transient ischaemic attack [Unknown]
  - Gastrointestinal haemorrhage [Unknown]
  - Dyspnoea [Unknown]
  - Blood cholesterol increased [Unknown]
  - Weight decreased [Unknown]
  - Fatigue [Unknown]
  - Photosensitivity reaction [Unknown]
  - Diarrhoea [Recovering/Resolving]
  - Cough [Unknown]
  - Therapeutic response unexpected [Unknown]
  - Skin cancer [Unknown]
  - Confusional state [Unknown]
  - Loss of consciousness [Unknown]
  - Loss of personal independence in daily activities [Unknown]
  - Nausea [Unknown]

NARRATIVE: CASE EVENT DATE: 202007
